FAERS Safety Report 14358337 (Version 2)
Quarter: 2018Q2

REPORT INFORMATION
  Report Type: Spontaneous
  Country: US (occurrence: US)
  Receive Date: 20180105
  Receipt Date: 20180404
  Transmission Date: 20180711
  Serious: No
  Sender: FDA-Public Use
  Company Number: US-SA-2017SA204696

PATIENT
  Age: 52 Year
  Sex: Male

DRUGS (1)
  1. DUPIXENT [Suspect]
     Active Substance: DUPILUMAB
     Indication: DERMATITIS ATOPIC
     Route: 058
     Dates: start: 20170815

REACTIONS (5)
  - Eye swelling [Unknown]
  - Dry eye [Unknown]
  - Eye irritation [Unknown]
  - Oral herpes [Unknown]
  - Eye discharge [Unknown]

NARRATIVE: CASE EVENT DATE: 2017
